FAERS Safety Report 7119766-5 (Version None)
Quarter: 2010Q4

REPORT INFORMATION
  Report Type: 
  Country: None (occurrence: None)
  Receive Date: 20101123
  Receipt Date: 20100810
  Transmission Date: 20110411
  Serious: Yes (Other)
  Sender: FDA-Public Use
  Company Number: US-BRISTOL-MYERS SQUIBB COMPANY-15234164

PATIENT
  Age: 73 Year
  Sex: Male

DRUGS (2)
  1. ONGLYZA [Suspect]
     Dates: start: 20100801
  2. ACTOS [Suspect]
     Dates: start: 20100801

REACTIONS (2)
  - CHEST PAIN [None]
  - HYPERSENSITIVITY [None]
